FAERS Safety Report 24223752 (Version 1)
Quarter: 2024Q3

REPORT INFORMATION
  Report Type: Report from Study
  Country: US (occurrence: US)
  Receive Date: 20240819
  Receipt Date: 20240819
  Transmission Date: 20241017
  Serious: Yes (Other)
  Sender: OTSUKA
  Company Number: US-OTSUKA-2024_022471

PATIENT
  Sex: Female

DRUGS (4)
  1. TOLVAPTAN [Suspect]
     Active Substance: TOLVAPTAN
     Indication: Congenital cystic kidney disease
     Dosage: 15 MG, QD (1 TABLET IN THE MORNING (EVERY 12 HOUR))
     Route: 048
     Dates: start: 20230712
  2. TOLVAPTAN [Suspect]
     Active Substance: TOLVAPTAN
     Dosage: 15 MG, QD (1 TABLET IN THE EVENING (EVERY 12 HOUR))
     Route: 048
     Dates: start: 20230712
  3. TOLVAPTAN [Suspect]
     Active Substance: TOLVAPTAN
     Dosage: 30 MG, QD (EVERY MORNING)
     Route: 048
     Dates: start: 20221020
  4. TOLVAPTAN [Suspect]
     Active Substance: TOLVAPTAN
     Dosage: 15 MG, QD (EVERY EVENING)
     Route: 048
     Dates: start: 20221020

REACTIONS (1)
  - Renal transplant [Unknown]
